FAERS Safety Report 16928087 (Version 2)
Quarter: 2019Q4

REPORT INFORMATION
  Report Type: Report from Study
  Country: DE (occurrence: DE)
  Receive Date: 20191017
  Receipt Date: 20191030
  Transmission Date: 20200122
  Serious: Yes (Life-Threatening, Other)
  Sender: FDA-Public Use
  Company Number: DE-SUN PHARMACEUTICAL INDUSTRIES LTD-2019RR-223989

PATIENT
  Age: 61 Year
  Sex: Female
  Weight: 116 kg

DRUGS (13)
  1. CANDESARTAN AAA [Concomitant]
     Active Substance: CANDESARTAN CILEXETIL
     Indication: HYPERTENSION
     Dosage: 16 MILLIGRAM, UNK, 1-0-0-0, SINCE MORE THAN 15 YEARS
     Route: 048
  2. LERCANIDIPINE ACTAVIS [Concomitant]
     Active Substance: LERCANIDIPINE HYDROCHLORIDE
     Indication: HYPERTENSION
     Dosage: 10 MILLIGRAM, UNK, 1-0-0-0
     Route: 048
     Dates: start: 201810
  3. SIMVASTATIN ABZ [Concomitant]
     Indication: LIPIDS INCREASED
     Dosage: 40 MILLIGRAM, UNK, 0-0-1-0
     Route: 048
     Dates: start: 201005
  4. LANTUS [Concomitant]
     Active Substance: INSULIN GLARGINE
     Indication: BLOOD INSULIN ABNORMAL
     Dosage: 100 UNK, UNK, 300 UNITS
     Route: 058
     Dates: start: 201704
  5. ILUMETRI 100 MG, INJEKTIONSL?SUNG [Suspect]
     Active Substance: TILDRAKIZUMAB
     Indication: PRODUCT USED FOR UNKNOWN INDICATION
     Dosage: 100 MILLIGRAM, EVERY 3 MONTHS
     Route: 058
     Dates: start: 20190802, end: 20190829
  6. ADENURIC [Concomitant]
     Active Substance: FEBUXOSTAT
     Indication: GOUT
     Dosage: 80 MILLIGRAM, UNK, 1-0-0-0
     Route: 048
     Dates: start: 201810
  7. BISOPROLOL AAA PHARMA [Concomitant]
     Indication: HYPERTENSION
     Dosage: 5 MILLIGRAM, UNK, 1-0-0-0, SINCE MORE THAN 15 YEARS
     Route: 048
  8. ACTRAPID [Concomitant]
     Active Substance: INSULIN HUMAN
     Indication: BLOOD INSULIN ABNORMAL
     Dosage: 100 INTERNATIONAL UNIT PER MILLILITRE, AS PER SCHEME, SINCE 10 YEARS
     Route: 058
  9. ASPIRIN. [Concomitant]
     Active Substance: ASPIRIN
     Indication: HAEMODILUTION
     Dosage: 100 MILLIGRAM, UNK
     Route: 048
     Dates: start: 201005
  10. VICTOZA [Concomitant]
     Active Substance: LIRAGLUTIDE
     Indication: DIABETES MELLITUS
     Dosage: 6 MILLIGRAM PER MILLILITRE, 1.8-0-0-0
     Route: 058
     Dates: start: 201301
  11. L-THYROXIN-NA-RATIOPHARM [Concomitant]
     Indication: THYROID DISORDER
     Dosage: 137 MICROGRAM, UNK, 1-0-0-0
     Route: 048
  12. METFORMIN HEUMANN [Concomitant]
     Active Substance: METFORMIN HYDROCHLORIDE
     Indication: DIABETES MELLITUS
     Dosage: 1000 MILLIGRAM, UNK, 1-0-1-0, SINCER 10 YEARS
     Route: 048
  13. TORASEMID ABZ [Concomitant]
     Indication: HYPERTENSION
     Dosage: 10 MILLIGRAM, UNK, 1/2-0-0-0
     Route: 048
     Dates: start: 201808

REACTIONS (2)
  - Thrombocytopenia [Recovering/Resolving]
  - Acute kidney injury [Not Recovered/Not Resolved]

NARRATIVE: CASE EVENT DATE: 20190926
